FAERS Safety Report 7940868-5 (Version None)
Quarter: 2011Q4

REPORT INFORMATION
  Report Type: 
  Country: None (occurrence: None)
  Receive Date: 20111114
  Receipt Date: 20111005
  Transmission Date: 20120403
  Serious: Yes (Death)
  Sender: FDA-Public Use
  Company Number: 1000023605

PATIENT
  Age: 68 Year
  Sex: Female

DRUGS (20)
  1. LISINOPRIL [Concomitant]
  2. PERPHENAZINE (PERPHENAZINE) (PERPHENAZINE) [Concomitant]
  3. REQUIP (ROPINIROLE HYDROCHLORIDE) (ROPINIROLE HYDROCHLORIDE) [Concomitant]
  4. CLONAZEPAM [Concomitant]
  5. ZEMPLAR (PARICALCITOL) (PARICALCITROL) [Concomitant]
  6. SAVELLA [Suspect]
     Indication: FIBROMYALGIA
     Dosage: SEE IMAGE
     Route: 048
     Dates: start: 20110701, end: 20110704
  7. SAVELLA [Suspect]
     Indication: DEPRESSION
     Dosage: SEE IMAGE
     Route: 048
     Dates: start: 20110701, end: 20110704
  8. SAVELLA [Suspect]
     Indication: FIBROMYALGIA
     Dosage: SEE IMAGE
     Route: 048
     Dates: start: 20110629, end: 20110630
  9. SAVELLA [Suspect]
     Indication: DEPRESSION
     Dosage: SEE IMAGE
     Route: 048
     Dates: start: 20110629, end: 20110630
  10. SAVELLA [Suspect]
     Indication: FIBROMYALGIA
     Dosage: SEE IMAGE
     Route: 048
     Dates: start: 20110628, end: 20110628
  11. SAVELLA [Suspect]
     Indication: DEPRESSION
     Dosage: SEE IMAGE
     Route: 048
     Dates: start: 20110628, end: 20110628
  12. TRAMADOL HCL [Concomitant]
  13. SYNTHROID (LEVOTHYROXINE SODIUM) (LEVOTHYROXINE SODIUM) [Concomitant]
  14. RESTORIL (TEMAZEPAM) (TEMAZEPAM) [Concomitant]
  15. SAVELLA [Suspect]
     Indication: FIBROMYALGIA
     Dosage: 50 MG BID (50 MG,2 IN 1 D),ORAL ; 25 MG BID (25 MG,2 IN 1 D),ORAL
     Route: 048
     Dates: start: 20110101, end: 20110915
  16. SAVELLA [Suspect]
     Indication: DEPRESSION
     Dosage: 50 MG BID (50 MG,2 IN 1 D),ORAL ; 25 MG BID (25 MG,2 IN 1 D),ORAL
     Route: 048
     Dates: start: 20110101, end: 20110915
  17. SAVELLA [Suspect]
     Indication: FIBROMYALGIA
     Dosage: 50 MG BID (50 MG,2 IN 1 D),ORAL ; 25 MG BID (25 MG,2 IN 1 D),ORAL
     Route: 048
     Dates: start: 20110705, end: 20110101
  18. SAVELLA [Suspect]
     Indication: DEPRESSION
     Dosage: 50 MG BID (50 MG,2 IN 1 D),ORAL ; 25 MG BID (25 MG,2 IN 1 D),ORAL
     Route: 048
     Dates: start: 20110705, end: 20110101
  19. SEROQUEL XR (QUETIAPINE FUMARATE) (QUETIAPINE FUMARATE) [Concomitant]
  20. ZOCOR [Concomitant]

REACTIONS (1)
  - DEATH [None]
